FAERS Safety Report 5450371-2 (Version None)
Quarter: 2007Q3

REPORT INFORMATION
  Report Type: 
  Country: None (occurrence: None)
  Receive Date: 20070912
  Receipt Date: 20070904
  Transmission Date: 20080115
  Serious: Yes (Other)
  Sender: FDA-Public Use
  Company Number: BR-SHR-BR-2007-033866

PATIENT
  Age: 55 Year
  Sex: Female

DRUGS (1)
  1. BETAFERON [Suspect]
     Dosage: 8 MIU, EVERY 2D
     Route: 058
     Dates: start: 20070111

REACTIONS (3)
  - BLOOD TEST ABNORMAL [None]
  - CHOLELITHIASIS [None]
  - PAIN IN EXTREMITY [None]
